FAERS Safety Report 7760029-2 (Version None)
Quarter: 2011Q3

REPORT INFORMATION
  Report Type: 
  Country: None (occurrence: None)
  Receive Date: 20110919
  Receipt Date: 20110908
  Transmission Date: 20111222
  Serious: Yes (Other)
  Sender: FDA-Public Use
  Company Number: US-BAYER-201029793NA

PATIENT
  Age: 18 Year
  Sex: Female
  Weight: 95.238 kg

DRUGS (26)
  1. MICROGESTIN FE 1.5/30 [Concomitant]
     Indication: POLYCYSTIC OVARIES
     Dosage: UNK
     Dates: start: 20060101, end: 20100101
  2. AMBIEN CR [Concomitant]
     Dosage: UNK
     Route: 048
     Dates: start: 20010101
  3. FLUOXETINE [Concomitant]
     Dosage: UNK
     Route: 048
     Dates: start: 20010101
  4. PREDNISONE [Concomitant]
     Dosage: UNK
     Route: 048
     Dates: start: 20060101, end: 20100101
  5. VITAMIN D [Concomitant]
     Dosage: UNK UNK, QD
     Route: 048
  6. DROSPIRENONE AND ETHINYL ESTRADIOL [Suspect]
     Dosage: UNK
     Route: 048
     Dates: start: 20080701, end: 20090901
  7. ACETAMINOPHEN [Concomitant]
     Dosage: UNK
     Route: 048
     Dates: start: 20010101
  8. OXYCODONE HCL AND ACETAMINOPHEN [Concomitant]
     Dosage: UNK
     Route: 048
     Dates: start: 20010101
  9. AMPHETAMINE AND DEXTROAMPHETAMINE SALTS [Concomitant]
     Dosage: UNK
     Route: 048
     Dates: start: 20010101
  10. MEBENDAZOLE [Concomitant]
     Dosage: UNK
     Route: 048
     Dates: start: 20010101
  11. MEDROXYPROGESTERONE [Concomitant]
     Dosage: UNK
     Route: 048
     Dates: start: 20010101
  12. PROTONIX [Concomitant]
     Dosage: UNK
     Route: 048
     Dates: start: 20010101
  13. AZITHROMYCIN [Concomitant]
     Dosage: UNK
     Dates: start: 20060101, end: 20100101
  14. HYDROCODONE BITARTRATE AND ACETAMINOPHEN [Concomitant]
     Dosage: UNK
     Route: 048
     Dates: start: 20060101, end: 20100101
  15. LORAZEPAM [Concomitant]
     Dosage: UNK
     Route: 048
     Dates: start: 20060101, end: 20100101
  16. CALCIUM CARBONATE [Concomitant]
     Dosage: UNK UNK, QD
     Route: 048
  17. CITALOPRAM HYDROBROMIDE [Concomitant]
     Dosage: UNK
     Route: 048
     Dates: start: 20010101
  18. CYMBALTA [Concomitant]
     Dosage: UNK
     Route: 048
     Dates: start: 20010101
  19. YASMIN [Suspect]
     Indication: CONTRACEPTION
     Dosage: UNK UNK, UNK
     Route: 048
     Dates: start: 20050101, end: 20070101
  20. YASMIN [Suspect]
     Indication: POLYCYSTIC OVARIES
  21. AMOXICILLIN [Concomitant]
     Dosage: UNK
     Route: 048
     Dates: start: 20010101
  22. BUPROPION HCL [Concomitant]
     Dosage: UNK
     Route: 048
     Dates: start: 20010101
  23. VIVOTIF [Concomitant]
     Dosage: UNK
     Route: 048
     Dates: start: 20010101
  24. ERYTHROMYCIN [Concomitant]
     Dosage: UNK
     Route: 048
     Dates: start: 20010101
  25. PROCHLORPERAZINE [Concomitant]
     Dosage: UNK
     Route: 048
     Dates: start: 20010101
  26. ALPRAZOLAM [Concomitant]
     Dosage: UNK
     Route: 048
     Dates: start: 20010101

REACTIONS (6)
  - IRRITABLE BOWEL SYNDROME [None]
  - CHOLELITHIASIS [None]
  - CHOLECYSTITIS CHRONIC [None]
  - ABDOMINAL DISCOMFORT [None]
  - STRESS [None]
  - DIARRHOEA [None]
